FAERS Safety Report 25631936 (Version 3)
Quarter: 2025Q4

REPORT INFORMATION
  Report Type: Report from Study
  Country: US (occurrence: US)
  Receive Date: 20250801
  Receipt Date: 20251028
  Transmission Date: 20260117
  Serious: Yes (Other)
  Sender: ACADIA PHARMACEUTICALS
  Company Number: US-ACADIA PHARMACEUTICALS INC.-ACA-2025-PIM-008812

PATIENT
  Sex: Female

DRUGS (8)
  1. NUPLAZID [Suspect]
     Active Substance: PIMAVANSERIN TARTRATE
     Indication: Delusional disorder, unspecified type
     Dosage: 34 MILLIGRAM, QD (AT BEDTIME)
     Route: 048
     Dates: start: 20230825
  2. CARBIDOPA\LEVODOPA [Concomitant]
     Active Substance: CARBIDOPA\LEVODOPA
     Dosage: UNK
  3. FUROSEMIDE [Concomitant]
     Active Substance: FUROSEMIDE
  4. LACOSAMIDE [Concomitant]
     Active Substance: LACOSAMIDE
  5. TYLENOL [Concomitant]
     Active Substance: ACETAMINOPHEN
  6. VENLAFAXINE [Concomitant]
     Active Substance: VENLAFAXINE HYDROCHLORIDE
     Dosage: UNK
  7. VIMPAT [Concomitant]
     Active Substance: LACOSAMIDE
  8. WAL ZYR NOS [Concomitant]
     Active Substance: UNSPECIFIED INGREDIENT

REACTIONS (2)
  - Parkinson^s disease [Not Recovered/Not Resolved]
  - Condition aggravated [Unknown]
